FAERS Safety Report 5085236-1 (Version None)
Quarter: 2006Q3

REPORT INFORMATION
  Report Type: 
  Country: None (occurrence: None)
  Receive Date: 20060816
  Receipt Date: 20060731
  Transmission Date: 20061208
  Serious: Yes (Hospitalization, Other)
  Sender: FDA-Public Use
  Company Number: 2006AL002045

PATIENT
  Age: 79 Year
  Sex: Male

DRUGS (9)
  1. DICLOFENAC SODIUM [Suspect]
     Indication: PAIN
     Dosage: 75 MG;BID;PO
     Route: 048
     Dates: start: 20050101, end: 20060318
  2. CITALOPRAM [Concomitant]
  3. ACETAMINOPHEN [Concomitant]
  4. CO-DANTHRAMER [Concomitant]
  5. OMEPRAZOLE [Concomitant]
  6. GLICLAZIDE [Concomitant]
  7. OXYCODONE HCL [Concomitant]
  8. DEXAMETHASONE [Concomitant]
  9. SALICYLIC ACID [Concomitant]

REACTIONS (4)
  - HAEMATEMESIS [None]
  - MALAISE [None]
  - OESOPHAGITIS [None]
  - VOMITING [None]
